FAERS Safety Report 14412001 (Version 1)
Quarter: 2018Q1

REPORT INFORMATION
  Report Type: Spontaneous
  Country: US (occurrence: US)
  Receive Date: 20180119
  Receipt Date: 20180119
  Transmission Date: 20180509
  Serious: Yes (Hospitalization)
  Sender: FDA-Public Use
  Company Number: US-JNJFOC-20180120404

PATIENT
  Age: 50 Year
  Sex: Male

DRUGS (1)
  1. INVOKANA [Suspect]
     Active Substance: CANAGLIFLOZIN
     Indication: TYPE 2 DIABETES MELLITUS
     Route: 048
     Dates: start: 20160201

REACTIONS (4)
  - Localised infection [Recovering/Resolving]
  - Osteomyelitis [Recovering/Resolving]
  - Diabetic gangrene [Recovering/Resolving]
  - Toe amputation [Recovering/Resolving]

NARRATIVE: CASE EVENT DATE: 201705
